FAERS Safety Report 21952069 (Version 2)
Quarter: 2023Q1

REPORT INFORMATION
  Report Type: Report from Study
  Country: IT (occurrence: IT)
  Receive Date: 20230203
  Receipt Date: 20230216
  Transmission Date: 20230417
  Serious: Yes (Hospitalization)
  Sender: FDA-Public Use
  Company Number: IT-PFIZER INC-PV202200084068

PATIENT
  Age: 41 Year
  Sex: Female

DRUGS (2)
  1. CYTOTEC [Suspect]
     Active Substance: MISOPROSTOL
     Indication: Abortion missed
     Dosage: 200 UG, 4X/DAY
     Route: 067
     Dates: start: 20180830, end: 20180830
  2. IBUPROFEN [Concomitant]
     Active Substance: IBUPROFEN
     Indication: Prophylaxis
     Dosage: UNK
     Route: 048
     Dates: start: 20180830, end: 20180830

REACTIONS (1)
  - Post abortion haemorrhage [Recovered/Resolved]

NARRATIVE: CASE EVENT DATE: 20180831
